FAERS Safety Report 17927724 (Version 1)
Quarter: 2020Q2

REPORT INFORMATION
  Report Type: Report from Study
  Country: CA (occurrence: CA)
  Receive Date: 20200622
  Receipt Date: 20200622
  Transmission Date: 20200714
  Serious: Yes (Other)
  Sender: FDA-Public Use
  Company Number: CA-NALPROPION PHARMACEUTICALS INC.-2020-009728

PATIENT

DRUGS (6)
  1. CONTRAVE [Suspect]
     Active Substance: BUPROPION HYDROCHLORIDE\NALTREXONE HYDROCHLORIDE
     Indication: WEIGHT CONTROL
     Dosage: 90MG/8MG (ONE TABLET IN THE MORNING)
     Route: 048
     Dates: start: 20200218, end: 202002
  2. CONTRAVE [Suspect]
     Active Substance: BUPROPION HYDROCHLORIDE\NALTREXONE HYDROCHLORIDE
     Dosage: 90MG/8MG (TWO TABLETS IN THE MORNING, TWO TABLETS IN THE EVENING)
     Route: 048
     Dates: start: 20200308
  3. LIPITOR [Concomitant]
     Active Substance: ATORVASTATIN CALCIUM
     Indication: HYPERCHOLESTEROLAEMIA
     Dosage: 1 IN 1 D
     Route: 048
  4. COVERSYL                           /00790702/ [Concomitant]
     Active Substance: PERINDOPRIL
     Indication: HYPERTENSION
     Dosage: 1 IN 1 D
     Route: 048
  5. CONTRAVE [Suspect]
     Active Substance: BUPROPION HYDROCHLORIDE\NALTREXONE HYDROCHLORIDE
     Dosage: 90MG/8MG (ONE TABLET IN THE MORNING, ONE TABLET IN THE EVENING)
     Route: 048
     Dates: start: 20200225, end: 2020
  6. CONTRAVE [Suspect]
     Active Substance: BUPROPION HYDROCHLORIDE\NALTREXONE HYDROCHLORIDE
     Dosage: 90MG/8MG (TWO TABLETS IN THE MORNING, ONE TABLET IN THE EVENING)
     Route: 048
     Dates: start: 20200303, end: 202003

REACTIONS (5)
  - Narcolepsy [Recovered/Resolved]
  - Infection [Recovered/Resolved]
  - Somnolence [Recovered/Resolved]
  - Insomnia [Unknown]
  - Malaise [Recovered/Resolved]

NARRATIVE: CASE EVENT DATE: 2020
